FAERS Safety Report 9247635 (Version 1)
Quarter: 2013Q1

REPORT INFORMATION
  Report Type: Spontaneous
  Country: US (occurrence: None)
  Receive Date: 20130305
  Receipt Date: 20130305
  Transmission Date: 20140127
  Serious: Yes (Other)
  Sender: FDA-Public Use
  Company Number: 163-21880-12093361

PATIENT
  Age: 69 Year
  Sex: Male
  Weight: 79.8 kg

DRUGS (3)
  1. REVLIMID [Suspect]
     Indication: PLASMA CELL MYELOMA
     Dosage: 20 MG, 21 IN 21 D
     Route: 048
     Dates: start: 20110622
  2. FLUOXETINE HCL [Concomitant]
  3. AREDIA (PAMIDRONATE DISODIUM) [Concomitant]

REACTIONS (2)
  - White blood cell count decreased [None]
  - Gastric infection [None]
